FAERS Safety Report 5774753-4 (Version None)
Quarter: 2008Q2

REPORT INFORMATION
  Report Type: 
  Country: None (occurrence: None)
  Receive Date: 20080613
  Receipt Date: 20080613
  Transmission Date: 20081010
  Serious: Yes (Death)
  Sender: FDA-Public Use
  Company Number: None

PATIENT
  Sex: Female
  Weight: 55.3388 kg

DRUGS (2)
  1. METHADON HCL TAB [Suspect]
     Indication: HEADACHE
     Dosage: 5 MG Q 8H PRN ORAL
     Route: 048
     Dates: start: 20070711
  2. DIAZEPAM [Suspect]
     Dosage: 2.5-10MG HS PRN ORAL
     Route: 048
     Dates: start: 20070711

REACTIONS (3)
  - CONDITION AGGRAVATED [None]
  - HEADACHE [None]
  - TUBERCULIN TEST POSITIVE [None]
